FAERS Safety Report 12780098 (Version 1)
Quarter: 2016Q3

REPORT INFORMATION
  Report Type: Spontaneous
  Country: US (occurrence: US)
  Receive Date: 20160923
  Receipt Date: 20160923
  Transmission Date: 20161109
  Serious: Yes (Other)
  Sender: FDA-Public Use
  Company Number: None

PATIENT
  Age: 43 Year
  Sex: Female
  Weight: 60.75 kg

DRUGS (10)
  1. FLEXERIL [Concomitant]
     Active Substance: CYCLOBENZAPRINE HYDROCHLORIDE
  2. OMEGA-3 ACIDS [Concomitant]
     Active Substance: OMEGA-3 FATTY ACIDS
  3. KLONOPIN [Concomitant]
     Active Substance: CLONAZEPAM
  4. ARTIFICIAL TEARS [Concomitant]
     Active Substance: GLYCERIN\HYPROMELLOSES\POLYETHYLENE GLYCOL 400
  5. ASPIRIN. [Concomitant]
     Active Substance: ASPIRIN
  6. ZYREM [Suspect]
     Active Substance: SODIUM OXYBATE
     Indication: HYPERSOMNIA
     Dosage: OTHER STRENGTH:;OTHER DOSE:;OTHER FREQUENCY:2 X NIGHT;OTHER ROUTE:
     Route: 048
     Dates: start: 20101001, end: 20110711
  7. TOPAMAX [Concomitant]
     Active Substance: TOPIRAMATE
  8. FLONASE [Concomitant]
     Active Substance: FLUTICASONE PROPIONATE
  9. CHANTIX [Suspect]
     Active Substance: VARENICLINE TARTRATE
     Indication: SMOKING CESSATION THERAPY
     Route: 048
     Dates: start: 20110415, end: 20110601
  10. PRISTIQ EXTENDED-RELEASE [Concomitant]
     Active Substance: DESVENLAFAXINE SUCCINATE

REACTIONS (7)
  - Hypersomnia [None]
  - Narcolepsy [None]
  - Abnormal behaviour [None]
  - Post lumbar puncture syndrome [None]
  - Vertigo [None]
  - Stress [None]
  - Paranoia [None]

NARRATIVE: CASE EVENT DATE: 20110523
